FAERS Safety Report 15987624 (Version 4)
Quarter: 2020Q4

REPORT INFORMATION
  Report Type: Report from Study
  Country: AU (occurrence: AU)
  Receive Date: 20190220
  Receipt Date: 20201210
  Transmission Date: 20210113
  Serious: Yes (Hospitalization, Other)
  Sender: FDA-Public Use
  Company Number: AU-SHIRE-AU201830386

PATIENT
  Age: 10 Year
  Sex: Male
  Weight: 28 kg

DRUGS (7)
  1. IDURSULFASE [Suspect]
     Active Substance: IDURSULFASE
     Dosage: 18 MILLIGRAM
     Route: 042
  2. IDURSULFASE [Suspect]
     Active Substance: IDURSULFASE
     Indication: MUCOPOLYSACCHARIDOSIS II
     Dosage: 12 MILLIGRAM, 1/WEEK
     Route: 041
  3. IDURSULFASE [Suspect]
     Active Substance: IDURSULFASE
     Dosage: 18 MILLIGRAM
     Route: 050
     Dates: start: 20190130, end: 20200610
  4. IDURSULFASE [Suspect]
     Active Substance: IDURSULFASE
     Dosage: 18 MILLIGRAM, 1/WEEK
     Route: 041
     Dates: start: 20180808
  5. IDURSULFASE [Suspect]
     Active Substance: IDURSULFASE
     Dosage: 18 MILLIGRAM
     Route: 050
     Dates: start: 20190116
  6. IDURSULFASE [Suspect]
     Active Substance: IDURSULFASE
     Dosage: 18 MILLIGRAM
     Route: 050
     Dates: start: 20190130
  7. CETIRIZINE [Concomitant]
     Active Substance: CETIRIZINE HYDROCHLORIDE
     Indication: PRODUCT USED FOR UNKNOWN INDICATION

REACTIONS (17)
  - Malaise [Unknown]
  - Seizure [Recovered/Resolved]
  - Poor venous access [Recovered/Resolved]
  - Administration site swelling [Recovering/Resolving]
  - Disease progression [Unknown]
  - Diarrhoea [Unknown]
  - Pyrexia [Recovering/Resolving]
  - Muscular weakness [Unknown]
  - Hypophagia [Unknown]
  - Adenoidal disorder [Unknown]
  - Joint contracture [Unknown]
  - Asthma [Unknown]
  - Upper respiratory tract infection [Recovered/Resolved]
  - Chromaturia [Unknown]
  - Infusion related reaction [Unknown]
  - Tonsillar disorder [Unknown]
  - Illness [Unknown]

NARRATIVE: CASE EVENT DATE: 20180731
